FAERS Safety Report 4815887-8 (Version None)
Quarter: 2005Q4

REPORT INFORMATION
  Report Type: 
  Country: None (occurrence: None)
  Receive Date: 20051031
  Receipt Date: 20051020
  Transmission Date: 20060501
  Serious: Yes (Other)
  Sender: FDA-Public Use
  Company Number: FR-JNJFOC-20050402219

PATIENT
  Sex: Female

DRUGS (8)
  1. RISPERDAL CONSTA [Suspect]
     Dosage: PRIOR TO ENROLLMENT IN STUDY (DOSE NOT SPECIFIED)
     Route: 030
     Dates: start: 20050113, end: 20050324
  2. RISPERDAL CONSTA [Suspect]
     Route: 030
     Dates: start: 20050113, end: 20050324
  3. RISPERIDONE [Concomitant]
     Route: 048
  4. INSULIN ACTRAPID [Concomitant]
     Dosage: 3-5 INJECTIONS A DAY
  5. INSULIN MIXTARD [Concomitant]
  6. HUMALOG [Concomitant]
  7. LANTUS [Concomitant]
  8. DIAMICRON [Concomitant]

REACTIONS (2)
  - ABORTION SPONTANEOUS [None]
  - DRUG EXPOSURE DURING PREGNANCY [None]
